FAERS Safety Report 6804084-2 (Version None)
Quarter: 2010Q2

REPORT INFORMATION
  Report Type: 
  Country: None (occurrence: None)
  Receive Date: 20100628
  Receipt Date: 20061024
  Transmission Date: 20101027
  Serious: No
  Sender: FDA-Public Use
  Company Number: US-PFIZER INC-2006131814

PATIENT
  Sex: Female
  Weight: 58.97 kg

DRUGS (3)
  1. SUTENT [Suspect]
     Indication: RENAL CELL CARCINOMA
     Dates: start: 20061013
  2. ALL OTHER THERAPEUTIC PRODUCTS [Concomitant]
  3. MORPHINE [Concomitant]

REACTIONS (1)
  - VOMITING [None]
